FAERS Safety Report 8139297 (Version 2)
Quarter: 2013Q1

REPORT INFORMATION
  Report Type: Spontaneous
  Country: US (occurrence: US)
  Receive Date: 20110916
  Receipt Date: 20130226
  Transmission Date: 20140127
  Serious: Yes (Other)
  Sender: FDA-Public Use
  Company Number: US-GLAXOSMITHKLINE-A0886400A

PATIENT
  Age: 62 Year
  Sex: Female

DRUGS (11)
  1. PROMACTA [Suspect]
     Indication: IDIOPATHIC THROMBOCYTOPENIC PURPURA
     Dosage: 50MG PER DAY
     Route: 048
     Dates: start: 201007
  2. SELENIUM [Concomitant]
  3. MILK THISTLE [Concomitant]
  4. CALCIUM + D [Concomitant]
  5. ESTER C [Concomitant]
  6. VITAMIN D [Concomitant]
  7. BETACAROTENE [Concomitant]
  8. RESTASIS [Concomitant]
  9. SILICA [Concomitant]
  10. METHYLPREDNISOLONE [Concomitant]
  11. TYLENOL [Concomitant]

REACTIONS (4)
  - Arthralgia [Recovering/Resolving]
  - Myalgia [Recovering/Resolving]
  - Platelet count decreased [Recovering/Resolving]
  - Dysuria [Not Recovered/Not Resolved]
